FAERS Safety Report 10515986 (Version 4)
Quarter: 2015Q2

REPORT INFORMATION
  Report Type: Report from Study
  Country: CZ (occurrence: CZ)
  Receive Date: 20141014
  Receipt Date: 20150427
  Transmission Date: 20150821
  Serious: Yes (Life-Threatening, Hospitalization, Disabling, Other)
  Sender: FDA-Public Use
  Company Number: CZ-009507513-1305CZE014726

PATIENT
  Age: 12 Year
  Sex: Male

DRUGS (52)
  1. FUROSEMIDE. [Concomitant]
     Active Substance: FUROSEMIDE
     Route: 048
  2. OMEPRAZOLE. [Concomitant]
     Active Substance: OMEPRAZOLE
     Dosage: UNK
     Dates: start: 20130207, end: 20130319
  3. HYDROCORTISONE. [Concomitant]
     Active Substance: HYDROCORTISONE
     Dosage: UNK
     Dates: start: 20130109, end: 20130109
  4. TEMOZOLOMIDE. [Suspect]
     Active Substance: TEMOZOLOMIDE
     Dosage: 280 MG, UNK
     Route: 065
     Dates: start: 20130423, end: 20130427
  5. FENTANYL CITRATE. [Concomitant]
     Active Substance: FENTANYL CITRATE
     Dosage: UNK
     Dates: start: 20130626, end: 20131024
  6. ONDANSETRONIUM [Concomitant]
     Dosage: UNK
     Dates: start: 20130423, end: 2013
  7. ONDANSETRONIUM [Concomitant]
     Dosage: UNK
     Dates: start: 20130603, end: 20130603
  8. OMEPRAZOLE. [Concomitant]
     Active Substance: OMEPRAZOLE
     Dosage: UNK
     Dates: start: 20130531, end: 20130531
  9. DEXAMETHASONE. [Concomitant]
     Active Substance: DEXAMETHASONE
     Dosage: UNK
     Dates: start: 20130320, end: 20130511
  10. DEXAMETHASONE. [Concomitant]
     Active Substance: DEXAMETHASONE
     Dosage: UNK
     Dates: start: 20130531, end: 20130531
  11. SULFAMETHOXAZOLE (+) TRIMETHOPRIM [Concomitant]
     Active Substance: SULFAMETHOXAZOLE\TRIMETHOPRIM
     Dosage: UNK
     Dates: start: 20130409, end: 20130429
  12. DIBUCAINE HYDROCHLORIDE (+) POLICRESULEN [Concomitant]
     Dosage: UNK
     Dates: start: 20130327
  13. TEMOZOLOMIDE. [Suspect]
     Active Substance: TEMOZOLOMIDE
     Dosage: UNK
     Route: 065
     Dates: start: 20130521
  14. DEXAMETHASONE. [Concomitant]
     Active Substance: DEXAMETHASONE
     Dosage: 8 MG, SINGLE DOSE
     Route: 042
     Dates: start: 20130206, end: 20130206
  15. DEXAMETHASONE. [Concomitant]
     Active Substance: DEXAMETHASONE
     Dosage: 6 MG, 2 IN 1DAY
     Route: 042
     Dates: start: 20130206, end: 20130207
  16. DEXAMETHASONE. [Concomitant]
     Active Substance: DEXAMETHASONE
     Dosage: 8 MG, QD
     Dates: start: 20130601, end: 20130601
  17. CEFAZOLINUM [Concomitant]
     Indication: PROPHYLAXIS
     Dosage: DRUG REPORTED AS CEFAZOLINUM
     Dates: start: 20130109, end: 20130110
  18. ACETAMINOPHEN. [Concomitant]
     Active Substance: ACETAMINOPHEN
     Dosage: UNK
     Dates: end: 20130114
  19. HYDROCORTISONE. [Concomitant]
     Active Substance: HYDROCORTISONE
     Dosage: UNK
     Dates: start: 20130209, end: 20130209
  20. ELECTROLYTES (UNSPECIFIED) [Concomitant]
     Active Substance: ELECTROLYTES NOS
     Dosage: UNK
     Dates: start: 20130512, end: 20130514
  21. DEXTROSE. [Concomitant]
     Active Substance: DEXTROSE
     Dosage: UNK
     Dates: start: 20130205, end: 20130205
  22. OMEPRAZOLE. [Concomitant]
     Active Substance: OMEPRAZOLE
     Dosage: UNK
     Dates: start: 20130515
  23. DEXAMETHASONE. [Concomitant]
     Active Substance: DEXAMETHASONE
     Dosage: 2 MG, UNK
     Route: 048
     Dates: start: 20130219, end: 20130226
  24. ACETAMINOPHEN. [Concomitant]
     Active Substance: ACETAMINOPHEN
     Dosage: UNK
     Dates: start: 20130515, end: 20130518
  25. ONDANSETRONIUM [Concomitant]
     Dosage: UNK
     Dates: start: 20130206, end: 20130206
  26. DEXTROSE. [Concomitant]
     Active Substance: DEXTROSE
     Dosage: UNK
     Dates: start: 20130512, end: 20130514
  27. DEXAMETHASONE. [Concomitant]
     Active Substance: DEXAMETHASONE
     Dosage: 2 MG, 3 IN 1DAY
     Route: 048
     Dates: start: 20130207, end: 20130218
  28. SILYMARIN [Concomitant]
     Active Substance: MILK THISTLE
     Dosage: DRUG REPORTED AS SILYMARINUM
     Dates: start: 20130128, end: 20130213
  29. BEVACIZUMAB [Suspect]
     Active Substance: BEVACIZUMAB
     Indication: BRAIN NEOPLASM MALIGNANT
     Dosage: UNK
  30. BEVACIZUMAB [Suspect]
     Active Substance: BEVACIZUMAB
     Dosage: 460 MG, UNK
     Route: 042
     Dates: start: 20130211
  31. ONDANSETRONIUM [Concomitant]
     Dosage: UNK
     Dates: start: 20130211, end: 20130324
  32. DEXAMETHASONE. [Concomitant]
     Active Substance: DEXAMETHASONE
     Dosage: UNK
     Route: 065
     Dates: start: 20130209, end: 20130209
  33. DEXAMETHASONE. [Concomitant]
     Active Substance: DEXAMETHASONE
     Dosage: 1 MG, QD
     Route: 048
     Dates: start: 20130227, end: 20130301
  34. SULFAMETHOXAZOLE (+) TRIMETHOPRIM [Concomitant]
     Active Substance: SULFAMETHOXAZOLE\TRIMETHOPRIM
     Dosage: UNK
     Dates: start: 20130205, end: 20130209
  35. TRAMADOL HYDROCHLORIDE. [Concomitant]
     Active Substance: TRAMADOL HYDROCHLORIDE
     Dosage: UNK
     Dates: start: 20130209, end: 20130210
  36. TEMOZOLOMIDE. [Suspect]
     Active Substance: TEMOZOLOMIDE
     Dosage: 100 MG, UNK
     Route: 065
     Dates: start: 20130211, end: 20130324
  37. ONDANSETRONIUM [Concomitant]
     Dosage: UNK
     Dates: start: 20130205, end: 20130205
  38. DEXTROSE. [Concomitant]
     Active Substance: DEXTROSE
     Dosage: UNK
     Dates: start: 20130515
  39. DEXAMETHASONE. [Concomitant]
     Active Substance: DEXAMETHASONE
     Dosage: 4 MG, SINGLE DOSE
     Route: 042
     Dates: start: 20130205, end: 20130205
  40. DEXAMETHASONE. [Concomitant]
     Active Substance: DEXAMETHASONE
     Dosage: UNK
     Dates: start: 20130512, end: 20130512
  41. CEFAZOLINUM [Concomitant]
     Dosage: UNK
     Dates: start: 20130512, end: 20130512
  42. TRAMADOL HYDROCHLORIDE. [Concomitant]
     Active Substance: TRAMADOL HYDROCHLORIDE
     Dosage: UNK
     Dates: start: 20130512, end: 2013
  43. PROMETHAZINE [Concomitant]
     Active Substance: PROMETHAZINE\PROMETHAZINE HYDROCHLORIDE
     Dosage: UNK
     Dates: start: 20130129, end: 20130129
  44. TEMOZOLOMIDE. [Suspect]
     Active Substance: TEMOZOLOMIDE
     Indication: BRAIN NEOPLASM MALIGNANT
     Dosage: UNK
     Route: 065
  45. BEVACIZUMAB [Suspect]
     Active Substance: BEVACIZUMAB
     Dosage: 460 MG, UNK
     Route: 042
     Dates: start: 20130521
  46. BEVACIZUMAB [Suspect]
     Active Substance: BEVACIZUMAB
     Dosage: 485 MG, UNK
     Route: 065
     Dates: start: 20130226
  47. BEVACIZUMAB [Suspect]
     Active Substance: BEVACIZUMAB
     Dosage: 500 MG, CYCLE 1 DAY 15
     Route: 065
     Dates: start: 20130507
  48. NADROPARIN CALCIUM [Concomitant]
     Active Substance: NADROPARIN CALCIUM
     Dosage: 3800 UI DAILY
     Route: 058
     Dates: start: 20130129, end: 20130202
  49. TRAMADOL HYDROCHLORIDE. [Concomitant]
     Active Substance: TRAMADOL HYDROCHLORIDE
     Dosage: REPORTED AS TRAMADOLUM
     Dates: start: 20130129, end: 20130206
  50. HYDROCORTISONE. [Concomitant]
     Active Substance: HYDROCORTISONE
     Dosage: 10 MG, BID
     Route: 048
     Dates: start: 20130305, end: 20130319
  51. HYDROCORTISONE. [Concomitant]
     Active Substance: HYDROCORTISONE
     Dosage: 50 MG, QD
     Route: 048
     Dates: start: 20130305, end: 20130319
  52. ELECTROLYTES (UNSPECIFIED) [Concomitant]
     Active Substance: ELECTROLYTES NOS
     Dosage: UNK
     Dates: start: 20130110, end: 20130111

REACTIONS (3)
  - Device malfunction [Recovered/Resolved with Sequelae]
  - Febrile neutropenia [Recovered/Resolved]
  - Deep vein thrombosis [Not Recovered/Not Resolved]

NARRATIVE: CASE EVENT DATE: 20130209
